FAERS Safety Report 10601832 (Version 1)
Quarter: 2014Q4

REPORT INFORMATION
  Report Type: Spontaneous
  Country: CN (occurrence: CN)
  Receive Date: 20141124
  Receipt Date: 20141124
  Transmission Date: 20150529
  Serious: Yes (Hospitalization)
  Sender: FDA-Public Use
  Company Number: PHHY2014CN151542

PATIENT
  Age: 60 Year
  Sex: Male

DRUGS (2)
  1. RIBAVIRIN. [Suspect]
     Active Substance: RIBAVIRIN
     Indication: HEPATITIS C
     Dosage: 800 MG, UNK
     Route: 065
  2. INTERFERON ALFA-2B [Suspect]
     Active Substance: INTERFERON ALFA-2B
     Indication: HEPATITIS C
     Dosage: 3MU, THRICE WEEKLY
     Route: 065

REACTIONS (7)
  - Lichen planus [Recovered/Resolved]
  - Pruritus [Recovered/Resolved]
  - Lymphocytic infiltration [Recovered/Resolved]
  - Skin striae [Recovered/Resolved]
  - Lip pain [Recovered/Resolved]
  - Skin lesion [Recovered/Resolved]
  - Skin erosion [Recovered/Resolved]
